FAERS Safety Report 13601619 (Version 1)
Quarter: 2017Q2

REPORT INFORMATION
  Report Type: Spontaneous
  Country: CH (occurrence: CH)
  Receive Date: 20170601
  Receipt Date: 20170601
  Transmission Date: 20170830
  Serious: Yes (Other)
  Sender: FDA-Public Use
  Company Number: CH-PFIZER INC-2017236882

PATIENT
  Age: 88 Year
  Sex: Male

DRUGS (11)
  1. TOREM [Interacting]
     Active Substance: TORSEMIDE
     Dosage: 40 MG, 1X/DAY
     Route: 048
  2. NORVASC [Concomitant]
     Active Substance: AMLODIPINE BESYLATE
     Dosage: UNK
  3. ZYLORIC [Interacting]
     Active Substance: ALLOPURINOL
     Dosage: 100 MG, 1X/DAY
     Route: 048
  4. ASPIRIN CARDIO [Concomitant]
     Active Substance: ASPIRIN
     Dosage: UNK
  5. XATRAL [Concomitant]
     Active Substance: ALFUZOSIN
     Dosage: UNK
     Dates: start: 20170413
  6. BELOC ZOK [Concomitant]
     Active Substance: METOPROLOL SUCCINATE
     Dosage: UNK
  7. TRIATEC [Suspect]
     Active Substance: RAMIPRIL
     Dosage: 1.25 MG, DAILY
     Route: 048
     Dates: start: 20170404
  8. CALCIMAGON-D3 [Concomitant]
     Active Substance: CALCIUM\CHOLECALCIFEROL
     Dosage: UNK
  9. OXYNORM [Concomitant]
     Active Substance: OXYCODONE HYDROCHLORIDE
     Dosage: UNK
     Dates: start: 20170418
  10. BACTRIM [Concomitant]
     Active Substance: SULFAMETHOXAZOLE\TRIMETHOPRIM
     Dosage: UNK
     Dates: start: 20170505, end: 20170508
  11. CORDARONE [Concomitant]
     Active Substance: AMIODARONE HYDROCHLORIDE
     Dosage: UNK
     Dates: end: 20170502

REACTIONS (2)
  - Hepatocellular injury [Not Recovered/Not Resolved]
  - Drug interaction [Unknown]

NARRATIVE: CASE EVENT DATE: 20170511
